FAERS Safety Report 25787933 (Version 1)
Quarter: 2025Q3

REPORT INFORMATION
  Report Type: Spontaneous
  Country: GB (occurrence: GB)
  Receive Date: 20250910
  Receipt Date: 20250910
  Transmission Date: 20251021
  Serious: Yes (Other)
  Sender: FERRING
  Company Number: None

PATIENT

DRUGS (6)
  1. FIRMAGON [Suspect]
     Active Substance: DEGARELIX ACETATE
     Indication: Prostate cancer stage IV
     Dosage: 80MG EVERY 28 DAYS
     Route: 065
     Dates: start: 20240803
  2. NAPROXEN [Concomitant]
     Active Substance: NAPROXEN
     Indication: Arthritis
     Route: 065
     Dates: start: 202007
  3. OMEPRAZOLE [Concomitant]
     Active Substance: OMEPRAZOLE
     Indication: Arthritis
     Route: 065
     Dates: start: 202007
  4. SERTRALINE [Concomitant]
     Active Substance: SERTRALINE HYDROCHLORIDE
     Indication: Depression
     Route: 065
     Dates: start: 202105
  5. DAROLUTAMIDE [Concomitant]
     Active Substance: DAROLUTAMIDE
     Indication: Prostate cancer stage IV
     Route: 065
     Dates: start: 202408
  6. CETIRIZINE HYDROCHLORIDE [Concomitant]
     Active Substance: CETIRIZINE HYDROCHLORIDE
     Indication: Inflammation
     Route: 065
     Dates: start: 202504

REACTIONS (10)
  - Myalgia [Unknown]
  - Injection site erythema [Unknown]
  - Injection site pain [Unknown]
  - Arthralgia [Recovering/Resolving]
  - Injection site warmth [Unknown]
  - Injection site rash [Unknown]
  - Inflammation [Not Recovered/Not Resolved]
  - Inflammatory pain [Recovering/Resolving]
  - Fatigue [Recovering/Resolving]
  - Muscle discomfort [Recovering/Resolving]

NARRATIVE: CASE EVENT DATE: 20250828
